FAERS Safety Report 4446969-0 (Version None)
Quarter: 2004Q3

REPORT INFORMATION
  Report Type: 
  Country: None (occurrence: None)
  Receive Date: 20040812
  Receipt Date: 20040513
  Transmission Date: 20050211
  Serious: Yes (Other)
  Sender: FDA-Public Use
  Company Number: USA040567482

PATIENT
  Age: 56 Year
  Sex: Male

DRUGS (12)
  1. HUMALOG [Suspect]
     Indication: DIABETES MELLITUS INSULIN-DEPENDENT
     Dosage: 25 U OTHER
     Dates: start: 19980101
  2. CIALIS [Suspect]
     Indication: ERECTILE DYSFUNCTION
     Dosage: 20 MG
     Dates: start: 20040512
  3. LANTUS [Concomitant]
  4. LIPITOR [Concomitant]
  5. LISINOPRIL AND HYDROCHLOROTHIAZIDE [Concomitant]
  6. FLEXERIL [Concomitant]
  7. ULTRAM [Concomitant]
  8. XANAX (ALPRAZLAM) [Concomitant]
  9. EFFEXOR XR [Concomitant]
  10. ANDRODERM [Concomitant]
  11. EXTRA STRENGTH TYLENOL [Concomitant]
  12. IBUPROFEN [Concomitant]

REACTIONS (8)
  - FEELING HOT [None]
  - FIBROMYALGIA [None]
  - FLUSHING [None]
  - HEPATIC ENZYME INCREASED [None]
  - HOT FLUSH [None]
  - INSULIN RESISTANCE [None]
  - LIVER DISORDER [None]
  - NASAL CONGESTION [None]
